FAERS Safety Report 9289940 (Version 3)
Quarter: 2015Q3

REPORT INFORMATION
  Report Type: Spontaneous
  Country: US (occurrence: US)
  Receive Date: 20130515
  Receipt Date: 20150717
  Transmission Date: 20151125
  Serious: Yes (Hospitalization)
  Sender: FDA-Public Use
  Company Number: US-BAYER-2013-059094

PATIENT
  Age: 37 Year
  Sex: Female
  Weight: 88.44 kg

DRUGS (20)
  1. IRON [Concomitant]
     Active Substance: IRON
     Route: 048
  2. LIDODERM [Concomitant]
     Active Substance: LIDOCAINE
  3. BIOTIN [Concomitant]
     Active Substance: BIOTIN
     Route: 048
  4. FLUCONAZOLE. [Concomitant]
     Active Substance: FLUCONAZOLE
     Dosage: 150 MG, UNK
  5. CALCIUM [Concomitant]
     Active Substance: CALCIUM
     Route: 048
  6. VITAMIN D3 [Concomitant]
     Active Substance: CHOLECALCIFEROL
     Route: 048
  7. PROVENTIL [Concomitant]
     Active Substance: ALBUTEROL
     Indication: BRONCHIAL HYPERREACTIVITY
  8. BENADRYL [Concomitant]
     Active Substance: DIPHENHYDRAMINE HYDROCHLORIDE
     Dosage: PRN
  9. YAZ [Suspect]
     Active Substance: DROSPIRENONE\ETHINYL ESTRADIOL
     Indication: ACNE
     Dosage: UNK
     Dates: start: 201005, end: 201009
  10. OCELLA [Suspect]
     Active Substance: DROSPIRENONE\ETHINYL ESTRADIOL
     Indication: PREMENSTRUAL DYSPHORIC DISORDER
  11. ADVAIR HFA [Concomitant]
     Active Substance: FLUTICASONE PROPIONATE\SALMETEROL XINAFOATE
     Indication: BRONCHIAL HYPERREACTIVITY
  12. CARDIZEM [Concomitant]
     Active Substance: DILTIAZEM HYDROCHLORIDE
  13. DIGITALIS [Concomitant]
     Active Substance: DIGITALIS
  14. AMIODARONE [Concomitant]
     Active Substance: AMIODARONE
  15. KEPPRA [Concomitant]
     Active Substance: LEVETIRACETAM
  16. YASMIN [Suspect]
     Active Substance: DROSPIRENONE\ETHINYL ESTRADIOL
     Indication: PREMENSTRUAL DYSPHORIC DISORDER
  17. YASMIN [Suspect]
     Active Substance: DROSPIRENONE\ETHINYL ESTRADIOL
     Indication: ACNE
     Dosage: UNK
     Dates: start: 201005, end: 201009
  18. YAZ [Suspect]
     Active Substance: DROSPIRENONE\ETHINYL ESTRADIOL
     Indication: PREMENSTRUAL DYSPHORIC DISORDER
  19. OCELLA [Suspect]
     Active Substance: DROSPIRENONE\ETHINYL ESTRADIOL
     Indication: ACNE
     Dosage: UNK
     Dates: start: 2008, end: 2009
  20. AMOXICILLIN. [Concomitant]
     Active Substance: AMOXICILLIN
     Indication: SINUSITIS
     Dosage: 10 DAYS PRIOR TO ADMISSION

REACTIONS (5)
  - Superior sagittal sinus thrombosis [None]
  - Cerebrovascular accident [None]
  - Transverse sinus thrombosis [Recovered/Resolved]
  - Cerebral thrombosis [None]
  - Generalised tonic-clonic seizure [None]

NARRATIVE: CASE EVENT DATE: 201009
